FAERS Safety Report 23488078 (Version 2)
Quarter: 2024Q1

REPORT INFORMATION
  Report Type: Spontaneous
  Country: GB (occurrence: GB)
  Receive Date: 20240206
  Receipt Date: 20240329
  Transmission Date: 20240410
  Serious: Yes (Life-Threatening, Hospitalization, Disabling, Other)
  Sender: FDA-Public Use
  Company Number: GB-002147023-NVSC2024GB023962

PATIENT
  Age: 21 Year
  Sex: Male
  Weight: 47 kg

DRUGS (2)
  1. KYMRIAH [Suspect]
     Active Substance: TISAGENLECLEUCEL
     Indication: B-cell type acute leukaemia
     Dosage: 380000 DOSAGE FORM (3.8 X 10^6 CD19 CAR-T CELLS PER KG)
     Route: 042
     Dates: start: 20231108, end: 20231108
  2. INOTUZUMAB OZOGAMICIN [Concomitant]
     Active Substance: INOTUZUMAB OZOGAMICIN
     Indication: B-cell type acute leukaemia
     Dosage: 0.72 MG, ONCE/SINGLE
     Route: 042
     Dates: start: 20230927, end: 20230927

REACTIONS (8)
  - Neurological decompensation [Not Recovered/Not Resolved]
  - Diplegia [Not Recovered/Not Resolved]
  - Immune effector cell-associated neurotoxicity syndrome [Recovered/Resolved]
  - Respiratory muscle weakness [Recovered/Resolved]
  - Respiratory failure [Recovered/Resolved]
  - Neuropathy peripheral [Recovering/Resolving]
  - Peroneal nerve palsy [Recovering/Resolving]
  - Optic neuritis [Recovered/Resolved]

NARRATIVE: CASE EVENT DATE: 20231114
